FAERS Safety Report 7732193-2 (Version None)
Quarter: 2011Q3

REPORT INFORMATION
  Report Type: 
  Country: None (occurrence: None)
  Receive Date: 20110906
  Receipt Date: 20110812
  Transmission Date: 20111222
  Serious: No
  Sender: FDA-Public Use
  Company Number: US-AMGEN-USASP2011041186

PATIENT
  Age: 64 Year
  Sex: Female

DRUGS (5)
  1. SYNTHROID [Concomitant]
     Dosage: UNK
  2. CALCIUM WITH VITAMIN D             /00944201/ [Concomitant]
     Dosage: UNK
  3. MAGNESIUM [Concomitant]
     Dosage: UNK
  4. SAVELLA [Concomitant]
     Dosage: UNK
  5. PROLIA [Suspect]
     Indication: OSTEOPOROSIS POSTMENOPAUSAL
     Dosage: 60 MG, Q6MO
     Dates: start: 20110811

REACTIONS (3)
  - SCIATICA [None]
  - ARTHRALGIA [None]
  - MYALGIA [None]
